FAERS Safety Report 18658279 (Version 3)
Quarter: 2021Q1

REPORT INFORMATION
  Report Type: Spontaneous
  Country: IT (occurrence: IT)
  Receive Date: 20201223
  Receipt Date: 20210305
  Transmission Date: 20210419
  Serious: Yes (Death, Hospitalization, Other)
  Sender: FDA-Public Use
  Company Number: IT-MYLANLABS-2020M1104333

PATIENT
  Age: 61 Year
  Sex: Female

DRUGS (10)
  1. PREDNISONE. [Suspect]
     Active Substance: PREDNISONE
     Indication: IMMUNOSUPPRESSION
     Dosage: UNK
     Route: 065
  2. MYCOPHENOLATE MOFETIL. [Suspect]
     Active Substance: MYCOPHENOLATE MOFETIL
     Indication: IMMUNOSUPPRESSION
     Dosage: UNK
  3. GANCICLOVIR. [Suspect]
     Active Substance: GANCICLOVIR
     Indication: CYTOMEGALOVIRUS INFECTION
     Dosage: UNK
  4. CICLOSPORIN [Suspect]
     Active Substance: CYCLOSPORINE
     Indication: IMMUNOSUPPRESSION
     Dosage: UNK
  5. CASPOFUNGIN [Suspect]
     Active Substance: CASPOFUNGIN
     Indication: PYREXIA
     Dosage: UNK
     Dates: start: 200308
  6. MEROPENEM. [Concomitant]
     Active Substance: MEROPENEM
     Dosage: UNK
  7. TEICOPLANIN [Concomitant]
     Active Substance: TEICOPLANIN
     Dosage: UNK
  8. CASPOFUNGIN [Suspect]
     Active Substance: CASPOFUNGIN
     Indication: INFECTION
     Dosage: UNK
  9. GRANULOCYTE COLONY STIMULATING FACTOR [Concomitant]
     Active Substance: GRANULOCYTE COLONY-STIMULATING FACTOR NOS
     Dosage: UNK
  10. CASPOFUNGIN [Suspect]
     Active Substance: CASPOFUNGIN
     Indication: ENTEROCOCCAL INFECTION

REACTIONS (10)
  - Cachexia [Fatal]
  - Fusarium infection [Recovered/Resolved]
  - Pleural effusion [Recovered/Resolved]
  - Pyrexia [Unknown]
  - Cytomegalovirus infection [Recovered/Resolved]
  - Hypogammaglobulinaemia [Unknown]
  - B-cell lymphoma [Not Recovered/Not Resolved]
  - Hepatic function abnormal [Fatal]
  - Enterococcal infection [Unknown]
  - Neutropenia [Unknown]

NARRATIVE: CASE EVENT DATE: 200309
